FAERS Safety Report 14353869 (Version 1)
Quarter: 2018Q1

REPORT INFORMATION
  Report Type: Spontaneous
  Country: FR (occurrence: FR)
  Receive Date: 20180105
  Receipt Date: 20180105
  Transmission Date: 20180509
  Serious: Yes (Congenital Anomaly)
  Sender: FDA-Public Use
  Company Number: FR-MERCK KGAA-2038432

PATIENT
  Age: 5 Month
  Sex: Female

DRUGS (3)
  1. NOVOTHYROX [Suspect]
     Active Substance: LEVOTHYROXINE SODIUM
     Indication: BASEDOW^S DISEASE
     Dates: end: 201709
  2. THYROZOL [Suspect]
     Active Substance: METHIMAZOLE
     Dates: end: 201709
  3. PROPYLEX [Suspect]
     Active Substance: PROPYLENE GLYCOL

REACTIONS (2)
  - Tracheomalacia [Not Recovered/Not Resolved]
  - Oesophageal atresia [Not Recovered/Not Resolved]
